FAERS Safety Report 4872539-6 (Version None)
Quarter: 2006Q1

REPORT INFORMATION
  Report Type: 
  Country: None (occurrence: None)
  Receive Date: 20060103
  Receipt Date: 20051221
  Transmission Date: 20060701
  Serious: No
  Sender: FDA-Public Use
  Company Number: DE200512004138

PATIENT
  Age: 25 Year
  Sex: Male

DRUGS (2)
  1. ZYPREXA [Suspect]
     Indication: SCHIZOPHRENIA, PARANOID TYPE
     Dosage: 12.5 MG, DAILY (1/D), ORAL
     Route: 048
     Dates: start: 20051101
  2. JATROSOM (TRANYLCYPROPMINE SULFATE, TRIFLUOPERAZINE HYDROCHLORIDE) [Concomitant]

REACTIONS (2)
  - EOSINOPHILIA [None]
  - NEUTROPHIL COUNT DECREASED [None]
